FAERS Safety Report 4771124-4 (Version None)
Quarter: 2005Q3

REPORT INFORMATION
  Report Type: 
  Country: None (occurrence: None)
  Receive Date: 20050915
  Receipt Date: 20050830
  Transmission Date: 20060218
  Serious: Yes (Hospitalization)
  Sender: FDA-Public Use
  Company Number: BE-ABBOTT-05P-013-0309885-00

PATIENT
  Sex: Male
  Weight: 114 kg

DRUGS (1)
  1. REDUCTIL 15MG [Suspect]
     Indication: OVERWEIGHT
     Route: 048
     Dates: start: 20050529

REACTIONS (2)
  - CALCULUS URINARY [None]
  - RENAL COLIC [None]
